FAERS Safety Report 7171034-1 (Version None)
Quarter: 2010Q4

REPORT INFORMATION
  Report Type: 
  Country: None (occurrence: None)
  Receive Date: 20101217
  Receipt Date: 20101210
  Transmission Date: 20110411
  Serious: Yes (Hospitalization)
  Sender: FDA-Public Use
  Company Number: US-AMGEN-USASP2010008753

PATIENT

DRUGS (2)
  1. ENBREL [Suspect]
     Indication: PSORIATIC ARTHROPATHY
     Dosage: 50 MG, QWK
     Dates: start: 20100630, end: 20101101
  2. METHOTREXATE [Concomitant]
     Dosage: 1 MG, QWK
     Dates: start: 20100501

REACTIONS (6)
  - ABDOMINAL TENDERNESS [None]
  - DYSPHAGIA [None]
  - FUNGAL OESOPHAGITIS [None]
  - HAEMOGLOBIN ABNORMAL [None]
  - RECTAL HAEMORRHAGE [None]
  - THYROID FUNCTION TEST ABNORMAL [None]
